FAERS Safety Report 25881996 (Version 4)
Quarter: 2025Q4

REPORT INFORMATION
  Report Type: Spontaneous
  Country: TR (occurrence: TR)
  Receive Date: 20251005
  Receipt Date: 20251210
  Transmission Date: 20260117
  Serious: Yes (Other)
  Sender: SANOFI AVENTIS
  Company Number: TR-SA-2025SA290315

PATIENT
  Age: 88 Year
  Sex: Female
  Weight: 90 kg

DRUGS (9)
  1. PLAVIX [Suspect]
     Active Substance: CLOPIDOGREL BISULFATE
     Indication: Embolism
     Dosage: 1 DF, QD (LXL)
     Route: 048
     Dates: start: 20250710, end: 2025
  2. PLETAL [Concomitant]
     Active Substance: CILOSTAZOL
     Dosage: UNK
  3. Liposomal iron [Concomitant]
     Indication: Iron deficiency
     Dosage: UNK
  4. LINAGLIPTIN [Concomitant]
     Active Substance: LINAGLIPTIN
     Dosage: UNK
  5. BENIDIPINE HYDROCHLORIDE [Concomitant]
     Active Substance: BENIDIPINE HYDROCHLORIDE
     Dosage: UNK
  6. DESAL [DESLORATADINE] [Concomitant]
     Dosage: UNK
  7. IRBESARTAN AND HYDROCHLOROTHIAZIDE [Concomitant]
     Active Substance: HYDROCHLOROTHIAZIDE\IRBESARTAN
     Dosage: UNK
  8. CALCIUM [Concomitant]
     Active Substance: CALCIUM
     Indication: Chronic kidney disease
     Dosage: UNK
  9. VITAMIN D [Concomitant]
     Active Substance: VITAMIN D NOS
     Indication: Chronic kidney disease
     Dosage: UNK

REACTIONS (2)
  - Skin laceration [Recovering/Resolving]
  - Haemorrhage subcutaneous [Recovering/Resolving]

NARRATIVE: CASE EVENT DATE: 20250907
